FAERS Safety Report 10645826 (Version 1)
Quarter: 2014Q4

REPORT INFORMATION
  Report Type: Spontaneous
  Country: US (occurrence: None)
  Receive Date: 20141203
  Receipt Date: 20141203
  Transmission Date: 20150529
  Serious: Yes (Other)
  Sender: FDA-Public Use
  Company Number: 2014SCPR009000

PATIENT
  Sex: Female

DRUGS (1)
  1. METOCLOPRAMIDE (METOCLOPRAMIDE) UNKNOWN [Suspect]
     Active Substance: METOCLOPRAMIDE
     Indication: PRODUCT USED FOR UNKNOWN INDICATION
     Dosage: UNK, UNK, UNKNOWN, ORAL
     Route: 048
     Dates: start: 200711, end: 201109

REACTIONS (1)
  - Tardive dyskinesia [None]
